FAERS Safety Report 9128555 (Version 6)
Quarter: 2017Q3

REPORT INFORMATION
  Report Type: Report from Study
  Country: JP (occurrence: JP)
  Receive Date: 20130228
  Receipt Date: 20170801
  Transmission Date: 20171128
  Serious: Yes (Life-Threatening, Hospitalization)
  Sender: FDA-Public Use
  Company Number: JP-ROCHE-1192044

PATIENT
  Age: 75 Year
  Sex: Female
  Weight: 47.8 kg

DRUGS (19)
  1. VASOLAN [Suspect]
     Active Substance: VERAPAMIL HYDROCHLORIDE
     Dosage: DOSE REDUCED FROM 4T/4X TO 3T/3X.
     Route: 065
     Dates: start: 20130613
  2. VASOLAN [Suspect]
     Active Substance: VERAPAMIL HYDROCHLORIDE
     Dosage: DOSE REDUCED FROM 3T/3X TO 2T/2X.
     Route: 065
     Dates: start: 20131028
  3. VEEN-D [Suspect]
     Active Substance: DEXTROSE
     Indication: GASTROENTERITIS
     Route: 065
     Dates: start: 20130215, end: 20130219
  4. HERBESSER [Concomitant]
     Active Substance: DILTIAZEM HYDROCHLORIDE
     Indication: HYPERTENSION
     Route: 065
     Dates: end: 20130215
  5. LIVALO [Concomitant]
     Active Substance: PITAVASTATIN CALCIUM
     Indication: HYPERLIPIDAEMIA
     Route: 065
     Dates: end: 20130215
  6. VOLTAREN [Concomitant]
     Active Substance: DICLOFENAC SODIUM
     Indication: ARTHRALGIA
     Route: 065
     Dates: start: 20130215
  7. VASOLAN [Suspect]
     Active Substance: VERAPAMIL HYDROCHLORIDE
     Indication: SUPRAVENTRICULAR TACHYCARDIA
     Route: 065
     Dates: start: 20130218
  8. MUCOSTA [Concomitant]
     Active Substance: REBAMIPIDE
     Indication: GASTRITIS
     Route: 065
     Dates: end: 20130215
  9. TRASTUZUMAB EMTANSINE [Suspect]
     Active Substance: ADO-TRASTUZUMAB EMTANSINE
     Indication: HER-2 POSITIVE BREAST CANCER
     Dosage: THE LAST DOSE PRIOR TO THE EVENT WAS 176.4 MG ON 29/JAN/2013.
     Route: 042
     Dates: start: 20110830, end: 20130129
  10. SODIUM CHLORIDE. [Suspect]
     Active Substance: SODIUM CHLORIDE
     Route: 065
     Dates: start: 20130219, end: 20130219
  11. KENKETSU ALBUMIN [Concomitant]
     Indication: HYPOALBUMINAEMIA
     Route: 065
     Dates: start: 20130220, end: 20130222
  12. PERTUZUMAB. [Suspect]
     Active Substance: PERTUZUMAB
     Indication: HER-2 POSITIVE BREAST CANCER
     Dosage: LOADING DOSE
     Route: 042
     Dates: start: 20110830
  13. SODIUM CHLORIDE. [Suspect]
     Active Substance: SODIUM CHLORIDE
     Indication: PRODUCT USED FOR UNKNOWN INDICATION
     Route: 065
     Dates: start: 20130215, end: 20130218
  14. SODIUM CHLORIDE. [Suspect]
     Active Substance: SODIUM CHLORIDE
     Route: 065
     Dates: start: 20130216, end: 20130216
  15. NATRIX [Concomitant]
     Active Substance: INDAPAMIDE
     Indication: HYPERTENSION
     Route: 065
     Dates: end: 20130215
  16. LONGES [Concomitant]
     Active Substance: LISINOPRIL
     Indication: HYPERTENSION
     Route: 065
     Dates: end: 20130215
  17. PERTUZUMAB. [Suspect]
     Active Substance: PERTUZUMAB
     Dosage: THE LAST DOSE PRIOR TO THE EVENT WAS ON 29/JAN/2013.?MAINTENANCE DOSE
     Route: 042
     Dates: end: 20130129
  18. SODIUM CHLORIDE. [Suspect]
     Active Substance: SODIUM CHLORIDE
     Route: 065
     Dates: start: 20130221, end: 20130226
  19. LENDORMIN [Concomitant]
     Active Substance: BROTIZOLAM
     Indication: INSOMNIA
     Route: 065
     Dates: end: 20130215

REACTIONS (2)
  - Gastroenteritis [Recovered/Resolved]
  - Cardiac failure [Recovered/Resolved]

NARRATIVE: CASE EVENT DATE: 20130215
